FAERS Safety Report 19793553 (Version 2)
Quarter: 2022Q1

REPORT INFORMATION
  Report Type: Report from Study
  Country: US (occurrence: US)
  Receive Date: 20210907
  Receipt Date: 20220130
  Transmission Date: 20220423
  Serious: Yes (Hospitalization, Other)
  Sender: FDA-Public Use
  Company Number: US-ABBVIE-21K-163-4068597-00

PATIENT
  Sex: Female

DRUGS (2)
  1. DUOPA [Suspect]
     Active Substance: CARBIDOPA\LEVODOPA
     Indication: Product used for unknown indication
     Route: 050
     Dates: start: 20200611
  2. DUOPA [Suspect]
     Active Substance: CARBIDOPA\LEVODOPA
     Route: 050

REACTIONS (6)
  - SARS-CoV-2 test positive [Unknown]
  - Living in residential institution [Unknown]
  - Device leakage [Unknown]
  - Device dislocation [Unknown]
  - Device alarm issue [Unknown]
  - Somnolence [Unknown]
